FAERS Safety Report 4433860-9 (Version None)
Quarter: 2004Q3

REPORT INFORMATION
  Report Type: 
  Country: None (occurrence: None)
  Receive Date: 20040826
  Receipt Date: 19991102
  Transmission Date: 20050211
  Serious: Yes (Hospitalization)
  Sender: FDA-Public Use
  Company Number: FR-GLAXOSMITHKLINE-B0072900A

PATIENT
  Sex: Female
  Weight: 3.7 kg

DRUGS (11)
  1. RETROVIR [Suspect]
     Indication: ANTIVIRAL PROPHYLAXIS
     Dosage: .7ML FOUR TIMES PER DAY
     Route: 048
  2. EPIVIR [Suspect]
     Indication: ANTIVIRAL PROPHYLAXIS
     Dosage: .7ML TWICE PER DAY
     Route: 048
     Dates: start: 19980623
  3. LAMIVUDINE [Suspect]
     Indication: HIV INFECTION
  4. AZT [Suspect]
     Indication: HIV INFECTION
  5. RANITIDINE [Concomitant]
  6. FERROSTRANE [Concomitant]
     Dosage: 1TAB PER DAY
  7. FOLDINE [Concomitant]
     Dosage: 1TAB ALTERNATE DAYS
     Route: 048
  8. POLYSILANE [Concomitant]
     Route: 048
  9. ERGOCALCIFEROL [Concomitant]
  10. SODIUM FLUORIDE [Concomitant]
  11. CISAPRIDE [Concomitant]

REACTIONS (13)
  - ANAEMIA [None]
  - ANAEMIA NEONATAL [None]
  - BLOOD LACTIC ACID INCREASED [None]
  - CAESAREAN SECTION [None]
  - CANDIDIASIS [None]
  - CRYING [None]
  - DRUG EXPOSURE DURING PREGNANCY [None]
  - FREE FATTY ACIDS INCREASED [None]
  - METABOLIC DISORDER [None]
  - OESOPHAGITIS [None]
  - PAIN [None]
  - PLATELET COUNT INCREASED [None]
  - STRIDOR [None]
